FAERS Safety Report 4575107-9 (Version None)
Quarter: 2005Q1

REPORT INFORMATION
  Report Type: 
  Country: None (occurrence: None)
  Receive Date: 20050208
  Receipt Date: 20050118
  Transmission Date: 20050727
  Serious: Yes (Hospitalization)
  Sender: FDA-Public Use
  Company Number: ES-SANOFI-SYNTHELABO-F01200500107

PATIENT
  Sex: Female
  Weight: 63 kg

DRUGS (6)
  1. OMEPRAZOLE [Concomitant]
     Dosage: UNK
     Route: 065
     Dates: start: 20040623
  2. ORFIDAL [Concomitant]
     Dosage: UNK
     Route: 065
     Dates: start: 20040624
  3. FERRO-GRADUMET [Concomitant]
     Dosage: UNK
     Route: 065
     Dates: start: 20040630, end: 20041117
  4. ESCITALOPRAM [Concomitant]
     Dosage: 20 MG
     Route: 048
     Dates: start: 20041111
  5. FLUOROURACIL [Suspect]
     Dosage: 2916 MG IN 48 HOURS, WEEKLY
     Route: 042
     Dates: start: 20041201, end: 20041201
  6. OXALIPLATIN [Suspect]
     Indication: COLORECTAL CANCER METASTATIC
     Route: 042
     Dates: start: 20041201, end: 20041201

REACTIONS (4)
  - ATROPHY [None]
  - BIOPSY LUNG ABNORMAL [None]
  - DYSPNOEA [None]
  - PULMONARY FIBROSIS [None]
